FAERS Safety Report 7559728-7 (Version None)
Quarter: 2011Q2

REPORT INFORMATION
  Report Type: 
  Country: None (occurrence: None)
  Receive Date: 20110621
  Receipt Date: 20110608
  Transmission Date: 20111010
  Serious: Yes (Hospitalization)
  Sender: FDA-Public Use
  Company Number: FR-PFIZER INC-FR-WYE-G01380708

PATIENT
  Age: 64 Year
  Sex: Female

DRUGS (14)
  1. CORDARONE X ^SANOFI^ [Concomitant]
     Dosage: UNK
     Route: 065
     Dates: start: 20071024
  2. LANTUS [Concomitant]
     Route: 065
  3. EUPRESSYL [Concomitant]
     Dosage: UNK
     Route: 048
     Dates: start: 20071107
  4. TARGOCID [Suspect]
     Indication: LUNG DISORDER
     Dosage: UNKNOWN
     Route: 042
     Dates: start: 20071024, end: 20071029
  5. PYOSTACINE [Suspect]
     Indication: URINARY TRACT INFECTION ENTEROCOCCAL
  6. NEXIUM [Concomitant]
     Dosage: UNK
     Route: 048
     Dates: start: 20071212
  7. LOVENOX [Concomitant]
     Route: 058
  8. FLUCONAZOLE [Suspect]
     Indication: INFECTION
     Dosage: UNKNOWN
     Route: 048
     Dates: start: 20071029, end: 20071108
  9. AMIKACIN [Suspect]
     Indication: STAPHYLOCOCCAL INFECTION
     Dosage: UNKNOWN
     Route: 030
     Dates: start: 20071024, end: 20071029
  10. PIPERACILLIN AND TAZOBACTAM [Suspect]
     Indication: LUNG DISORDER
     Dosage: UNKNOWN
     Route: 042
     Dates: start: 20071024, end: 20071029
  11. ASPEGIC 325 [Suspect]
     Indication: PROPHYLAXIS
     Dosage: UNKNOWN
     Route: 048
     Dates: start: 20070924, end: 20071212
  12. KEPPRA [Suspect]
     Indication: PROPHYLAXIS
     Dosage: UNKNOWN
     Route: 048
     Dates: start: 20070924, end: 20071212
  13. ZYVOX [Suspect]
     Indication: LUNG DISORDER
     Dosage: UNKNOWN
     Route: 042
     Dates: start: 20071029, end: 20071108
  14. PYOSTACINE [Suspect]
     Indication: STAPHYLOCOCCAL BACTERAEMIA
     Dosage: UNKNOWN
     Route: 048
     Dates: start: 20071029, end: 20071108

REACTIONS (6)
  - PANCYTOPENIA [None]
  - MARROW HYPERPLASIA [None]
  - HYPOVITAMINOSIS [None]
  - BONE MARROW FAILURE [None]
  - HAEMOLYSIS [None]
  - SERUM FERRITIN INCREASED [None]
